FAERS Safety Report 6348341-5 (Version None)
Quarter: 2009Q3

REPORT INFORMATION
  Report Type: 
  Country: None (occurrence: None)
  Receive Date: 20090908
  Receipt Date: 20090820
  Transmission Date: 20100115
  Serious: Yes (Hospitalization, Other)
  Sender: FDA-Public Use
  Company Number: 2008AL006729

PATIENT
  Age: 70 Year
  Sex: Female

DRUGS (33)
  1. DIGOXIN [Suspect]
     Indication: ATRIAL FIBRILLATION
     Dosage: 0.125MG, DAILY, PO
     Route: 048
     Dates: start: 20080509
  2. MIRTAZAPINE [Concomitant]
  3. MEGESTROL ACETATE [Concomitant]
  4. NEXIUM [Concomitant]
  5. WARFARIN SODIUM [Concomitant]
  6. PANTOPRAZOLE SODIUM [Concomitant]
  7. FUROSEMIDE [Concomitant]
  8. PREDNISONE [Concomitant]
  9. FLUCONAZOLE [Concomitant]
  10. NYSTATIN [Concomitant]
  11. CYCLOPHOSPHAMIDE [Concomitant]
  12. ONDANSETRON [Concomitant]
  13. AMLODIPINE BESYLATE [Concomitant]
  14. PROPOXYPHEN-APAP [Concomitant]
  15. METOPROLOL TARTRATE [Concomitant]
  16. LISINOPRIL [Concomitant]
  17. LEVAQUIN [Concomitant]
  18. PROPAFENONE HCL [Concomitant]
  19. PATANOL [Concomitant]
  20. MECLIZINE [Concomitant]
  21. MEPHYTON [Concomitant]
  22. HYDROXYCHLOROQUINE [Concomitant]
  23. VANCOMYCIN [Concomitant]
  24. PROTONIX [Concomitant]
  25. CIPROFLAXACIN [Concomitant]
  26. RISPERDAL [Concomitant]
  27. MOMETASONE FUROATE [Concomitant]
  28. METRONIDAZOLE [Concomitant]
  29. CEFDINIR [Concomitant]
  30. VALTREX [Concomitant]
  31. LYRICA [Concomitant]
  32. HYDROCODONE BITARTRATE AND ACETAMINOPHEN [Concomitant]
  33. TAMIFLU [Concomitant]

REACTIONS (5)
  - CARDIAC DISORDER [None]
  - CEREBROVASCULAR ACCIDENT [None]
  - FALL [None]
  - HAEMODYNAMIC INSTABILITY [None]
  - WEIGHT DECREASED [None]
